FAERS Safety Report 8225771-8 (Version None)
Quarter: 2012Q1

REPORT INFORMATION
  Report Type: 
  Country: None (occurrence: None)
  Receive Date: 20120321
  Receipt Date: 20120312
  Transmission Date: 20120608
  Serious: Yes (Hospitalization)
  Sender: FDA-Public Use
  Company Number: CO-ELI_LILLY_AND_COMPANY-CO201202007409

PATIENT
  Age: 68 Year
  Sex: Female

DRUGS (10)
  1. METOPROLOL SUCCINATE [Concomitant]
  2. FOLIC ACID [Concomitant]
  3. FORTEO [Suspect]
     Dosage: 20 UG, QD
     Route: 058
     Dates: start: 20111201
  4. SULFASALAZINE [Concomitant]
  5. METHOTREXATE [Concomitant]
  6. VYTORIN [Concomitant]
  7. FORTEO [Suspect]
     Indication: OSTEOPOROSIS
     Dosage: 20 UG, QD
     Route: 058
     Dates: start: 20100701, end: 20111028
  8. PREDNISOLONE [Concomitant]
  9. ASPIRIN [Concomitant]
  10. BIOCALCIUM D3 [Concomitant]
     Indication: SUPPLEMENTATION THERAPY

REACTIONS (2)
  - PAIN IN EXTREMITY [None]
  - ARTHRALGIA [None]
